FAERS Safety Report 21746499 (Version 1)
Quarter: 2022Q4

REPORT INFORMATION
  Report Type: Spontaneous
  Country: US (occurrence: None)
  Receive Date: 20221216
  Receipt Date: 20221216
  Transmission Date: 20230113
  Serious: No
  Sender: FDA-Public Use
  Company Number: None

PATIENT
  Sex: Female

DRUGS (1)
  1. HUMIRA [Suspect]
     Active Substance: ADALIMUMAB
     Indication: Psoriasis
     Route: 058
     Dates: start: 202005

REACTIONS (6)
  - Insurance issue [None]
  - Product supply issue [None]
  - Product prescribing issue [None]
  - Psoriasis [None]
  - Arthritis [None]
  - Arthralgia [None]
